FAERS Safety Report 5844195-1 (Version None)
Quarter: 2008Q3

REPORT INFORMATION
  Report Type: 
  Country: None (occurrence: None)
  Receive Date: 20080813
  Receipt Date: 20080801
  Transmission Date: 20090109
  Serious: Yes (Hospitalization)
  Sender: FDA-Public Use
  Company Number: DE-PFIZER INC-2008065028

PATIENT
  Sex: Female

DRUGS (3)
  1. FARMORUBICIN [Suspect]
     Indication: BREAST CANCER
     Dosage: DAILY DOSE:185MG
     Route: 042
  2. CYCLOPHOSPHAMIDE [Suspect]
     Indication: BREAST CANCER
     Dosage: DAILY DOSE:930MG
  3. RIBOFLUOR [Suspect]
     Indication: BREAST CANCER
     Dosage: DAILY DOSE:930MG
     Route: 042

REACTIONS (1)
  - FEBRILE NEUTROPENIA [None]
